FAERS Safety Report 9311915 (Version 1)
Quarter: 2013Q2

REPORT INFORMATION
  Report Type: Report from Study
  Country: CA (occurrence: CA)
  Receive Date: 20130528
  Receipt Date: 20130528
  Transmission Date: 20140414
  Serious: Yes (Death)
  Sender: FDA-Public Use
  Company Number: PHHY2012CA036928

PATIENT
  Age: 58 Year
  Sex: Female

DRUGS (2)
  1. AFINITOR [Suspect]
     Indication: NEUROENDOCRINE CARCINOMA
     Dosage: 10 MG, QD
     Route: 048
     Dates: start: 20120129
  2. SANDOSTATIN LAR [Suspect]
     Indication: NEUROENDOCRINE CARCINOMA
     Dosage: 90 MG, QMO
     Route: 030

REACTIONS (7)
  - Death [Fatal]
  - Alopecia [Unknown]
  - Trichorrhexis [Unknown]
  - Arthropod sting [Unknown]
  - Erythema [Unknown]
  - Local swelling [Unknown]
  - Pain [Unknown]
